FAERS Safety Report 5921467-3 (Version None)
Quarter: 2008Q4

REPORT INFORMATION
  Report Type: 
  Country: None (occurrence: None)
  Receive Date: 20081016
  Receipt Date: 20081016
  Transmission Date: 20090506
  Serious: Yes (Other)
  Sender: FDA-Public Use
  Company Number: None

PATIENT
  Sex: Female
  Weight: 65.318 kg

DRUGS (2)
  1. LISINOPRIL [Suspect]
     Indication: BLOOD PRESSURE
     Dosage: 1 TWICE DAILY 3-4 YEARS
  2. LISINOPRIL [Suspect]
     Indication: CARDIAC DISORDER
     Dosage: 1 TWICE DAILY 3-4 YEARS

REACTIONS (1)
  - BRONCHITIS [None]
